FAERS Safety Report 7952036-1 (Version None)
Quarter: 2011Q4

REPORT INFORMATION
  Report Type: 
  Country: None (occurrence: None)
  Receive Date: 20111201
  Receipt Date: 20111116
  Transmission Date: 20120403
  Serious: Yes (Death)
  Sender: FDA-Public Use
  Company Number: IL-WATSON-2011-20454

PATIENT
  Age: 43 Year
  Sex: Female

DRUGS (16)
  1. CARBOPLATIN [Suspect]
     Indication: BREAST CANCER
  2. VINORELBINE [Suspect]
     Indication: BREAST CANCER
  3. GEMCITABINE [Suspect]
     Indication: BREAST CANCER
  4. FULVESTRANT [Suspect]
     Indication: BREAST CANCER
  5. EXEMESTANE [Suspect]
     Indication: BREAST CANCER
  6. CAPECITABINE [Suspect]
     Indication: BREAST CANCER
  7. DOCETAXEL [Suspect]
     Indication: BREAST CANCER
  8. MITOMYCIN [Suspect]
     Indication: BREAST CANCER
  9. TAMOXIFEN CITRATE [Suspect]
     Indication: BREAST CANCER
  10. CYCLOPHOSPHAMIDE [Suspect]
     Indication: BREAST CANCER
  11. PACLITAXEL [Suspect]
     Indication: BREAST CANCER
  12. MEGESTROL ACETATE [Suspect]
     Indication: BREAST CANCER
  13. IRINOTECAN HCL [Suspect]
     Indication: BREAST CANCER
  14. DOXORUBICIN HCL [Suspect]
     Indication: BREAST CANCER
  15. ARIMIDEX [Suspect]
     Indication: BREAST CANCER
  16. BEVACIZUMAB [Suspect]
     Indication: BREAST CANCER

REACTIONS (2)
  - HEPATIC FAILURE [None]
  - LIVER SCAN ABNORMAL [None]
